FAERS Safety Report 9662031 (Version 1)
Quarter: 2013Q4

REPORT INFORMATION
  Report Type: Not Available
  Country: US (occurrence: US)
  Receive Date: 20131031
  Receipt Date: 20131031
  Transmission Date: 20140711
  Serious: No
  Sender: FDA-Public Use
  Company Number: US-PURDUE-USA-2011-0067972

PATIENT
  Sex: 0

DRUGS (1)
  1. OXYCONTIN (NDA 22-272) [Suspect]
     Indication: ANALGESIC THERAPY
     Dosage: 30 MG, UNK

REACTIONS (3)
  - Headache [Unknown]
  - Drug ineffective [Unknown]
  - Nausea [Unknown]
